FAERS Safety Report 6331158-5 (Version None)
Quarter: 2009Q3

REPORT INFORMATION
  Report Type: 
  Country: None (occurrence: None)
  Receive Date: 20090827
  Receipt Date: 20090817
  Transmission Date: 20100115
  Serious: Yes (Hospitalization)
  Sender: FDA-Public Use
  Company Number: GB-ABBOTT-09P-167-0564967-00

PATIENT
  Sex: Male
  Weight: 74 kg

DRUGS (38)
  1. HUMIRA [Suspect]
     Indication: RHEUMATOID ARTHRITIS
     Route: 058
     Dates: start: 20040830
  2. HUMIRA [Suspect]
     Route: 058
  3. ALGINATES [Concomitant]
     Indication: DRUG USE FOR UNKNOWN INDICATION
     Dates: start: 20040211
  4. AMINOPHYLLINE - SLOW RELEASE [Concomitant]
     Indication: DRUG USE FOR UNKNOWN INDICATION
     Dates: start: 20040211
  5. AMITRIPTYLINE [Concomitant]
     Indication: DRUG USE FOR UNKNOWN INDICATION
     Dosage: AT NIGHT
  6. BECLOFORTE [Concomitant]
     Indication: DRUG USE FOR UNKNOWN INDICATION
     Dates: start: 20040211
  7. CO-CODYDRAMOL [Concomitant]
     Indication: DRUG USE FOR UNKNOWN INDICATION
     Dates: start: 20040211
  8. COLISTIN SULFATE [Concomitant]
     Indication: DRUG USE FOR UNKNOWN INDICATION
     Dates: start: 20040211
  9. DIDRONEL [Concomitant]
     Indication: DRUG USE FOR UNKNOWN INDICATION
     Dates: start: 20040211
  10. HUMALOG [Concomitant]
     Indication: DRUG USE FOR UNKNOWN INDICATION
     Dates: start: 20040211
  11. IPRATROPIUM BROMIDE NEBULISER [Concomitant]
     Indication: DRUG USE FOR UNKNOWN INDICATION
  12. LANSOPRAZOLE [Concomitant]
     Indication: DRUG USE FOR UNKNOWN INDICATION
     Dates: start: 20040211
  13. NABUMETONE [Concomitant]
     Indication: DRUG USE FOR UNKNOWN INDICATION
     Dates: start: 20040211
  14. PERINDOPRIL [Concomitant]
     Indication: DRUG USE FOR UNKNOWN INDICATION
     Dates: start: 20040211
  15. PREDNISOLONE [Concomitant]
     Indication: DRUG USE FOR UNKNOWN INDICATION
  16. SALBUTAMOL [Concomitant]
     Indication: DRUG USE FOR UNKNOWN INDICATION
     Dates: start: 20040211
  17. TERBUTALINE SULPHATE RESPULES [Concomitant]
     Indication: DRUG USE FOR UNKNOWN INDICATION
  18. BECLAZONE [Concomitant]
     Indication: DRUG USE FOR UNKNOWN INDICATION
     Dosage: INHALER
  19. VENTOLIN [Concomitant]
     Indication: DRUG USE FOR UNKNOWN INDICATION
     Dosage: INHALER
  20. CLOPIDOGREL [Concomitant]
     Indication: DRUG USE FOR UNKNOWN INDICATION
  21. ESOMEPRAZOLE [Concomitant]
     Indication: DRUG USE FOR UNKNOWN INDICATION
  22. ASPIRIN [Concomitant]
     Indication: DRUG USE FOR UNKNOWN INDICATION
  23. NICORANDIL [Concomitant]
     Indication: DRUG USE FOR UNKNOWN INDICATION
  24. IVABRADINE [Concomitant]
     Indication: DRUG USE FOR UNKNOWN INDICATION
  25. SIMVADOR [Concomitant]
     Indication: DRUG USE FOR UNKNOWN INDICATION
  26. MUCODYNE [Concomitant]
     Indication: DRUG USE FOR UNKNOWN INDICATION
  27. LISINOPRIL [Concomitant]
     Indication: DRUG USE FOR UNKNOWN INDICATION
  28. STRONTIUM RANELATE [Concomitant]
     Indication: DRUG USE FOR UNKNOWN INDICATION
  29. FOLIC ACID [Concomitant]
     Indication: DRUG USE FOR UNKNOWN INDICATION
     Dosage: DAILY
  30. ADCAL D3 [Concomitant]
     Indication: DRUG USE FOR UNKNOWN INDICATION
  31. LANTUS [Concomitant]
     Indication: DRUG USE FOR UNKNOWN INDICATION
  32. FENTANYL [Concomitant]
     Indication: DRUG USE FOR UNKNOWN INDICATION
     Dosage: PATCH
  33. METHADONE [Concomitant]
     Indication: DRUG USE FOR UNKNOWN INDICATION
  34. IMDUR [Concomitant]
     Indication: DRUG USE FOR UNKNOWN INDICATION
  35. NITROGLYCERIN [Concomitant]
     Indication: DRUG USE FOR UNKNOWN INDICATION
  36. PARACETAMOL [Concomitant]
     Indication: DRUG USE FOR UNKNOWN INDICATION
  37. ZINC SULPHATE [Concomitant]
     Indication: DRUG USE FOR UNKNOWN INDICATION
  38. OXYGEN [Concomitant]
     Indication: DRUG USE FOR UNKNOWN INDICATION

REACTIONS (5)
  - ARTHRALGIA [None]
  - BRONCHIECTASIS [None]
  - OSTEOPOROSIS [None]
  - TYPE 1 DIABETES MELLITUS [None]
  - YOUNG'S SYNDROME [None]
